FAERS Safety Report 10219333 (Version 2)
Quarter: 2014Q2

REPORT INFORMATION
  Report Type: Report from Study
  Country: CA (occurrence: CA)
  Receive Date: 20140605
  Receipt Date: 20140605
  Transmission Date: 20141212
  Serious: Yes (Death, Other)
  Sender: FDA-Public Use
  Company Number: PHHY2013CA102672

PATIENT
  Age: 46 Year
  Sex: Female

DRUGS (2)
  1. ZOMETA [Suspect]
     Indication: BREAST CANCER
     Dosage: 4 MG, EVERY 3 MONTHS
     Route: 042
     Dates: start: 20090401, end: 20140324
  2. EXEMESTANE [Concomitant]
     Dosage: 1 DF, DAILY
     Route: 048

REACTIONS (8)
  - Death [Fatal]
  - Breast cancer metastatic [Unknown]
  - Malignant neoplasm progression [Unknown]
  - Poor venous access [Unknown]
  - Neuralgia [Unknown]
  - Insomnia [Unknown]
  - Pain in extremity [Unknown]
  - Abdominal pain upper [Unknown]
